FAERS Safety Report 26144209 (Version 1)
Quarter: 2025Q4

REPORT INFORMATION
  Report Type: Spontaneous
  Country: EU (occurrence: EU)
  Receive Date: 20251211
  Receipt Date: 20251211
  Transmission Date: 20260118
  Serious: Yes (Disabling)
  Sender: RANBAXY
  Company Number: EU-AFSSAPS-PA2025000786

PATIENT
  Age: 59 Year
  Sex: Male
  Weight: 93 kg

DRUGS (5)
  1. QUETIAPINE [Suspect]
     Active Substance: QUETIAPINE
     Indication: Depression
     Dosage: 50 MILLIGRAM, TOTAL 150 MILLIGRAM, IN TOTAL (THE PATIENT TAKES ONLY ONE CAPSULE)
     Route: 048
     Dates: start: 20250321, end: 20250322
  2. QUETIAPINE [Suspect]
     Active Substance: QUETIAPINE
     Indication: Depression
     Dosage: UNK
     Route: 048
  3. ZOLOFT [Concomitant]
     Active Substance: SERTRALINE HYDROCHLORIDE
     Indication: Depression
     Dosage: TREATMENT STARTED AT 25 MG PER DAY, THEN INCREASED TO 50 MG, THEN 100 MG. MID-2024: INCREASED TO 125
     Route: 048
     Dates: start: 202306, end: 202503
  4. ESOMEPRAZOLE MAGNESIUM [Concomitant]
     Active Substance: ESOMEPRAZOLE MAGNESIUM
     Indication: Product used for unknown indication
     Dosage: UNK
     Route: 065
  5. CIALIS [Concomitant]
     Active Substance: TADALAFIL
     Indication: Product used for unknown indication
     Dosage: UNK
     Route: 065

REACTIONS (4)
  - Muscle fatigue [Recovering/Resolving]
  - Asthenia [Recovering/Resolving]
  - Disturbance in attention [Recovering/Resolving]
  - Headache [Recovering/Resolving]

NARRATIVE: CASE EVENT DATE: 20250322
